FAERS Safety Report 25680683 (Version 2)
Quarter: 2025Q3

REPORT INFORMATION
  Report Type: Report from Study
  Country: CA (occurrence: CA)
  Receive Date: 20250814
  Receipt Date: 20250820
  Transmission Date: 20251020
  Serious: Yes (Other)
  Sender: SANOFI AVENTIS
  Company Number: CA-SA-2025SA235170

PATIENT
  Age: 15 Year
  Sex: Male
  Weight: 58.5 kg

DRUGS (6)
  1. DUPILUMAB [Suspect]
     Active Substance: DUPILUMAB
     Indication: Dermatitis atopic
     Route: 058
     Dates: start: 20250807, end: 20250807
  2. PROTOPIC [Concomitant]
     Active Substance: TACROLIMUS
     Dates: start: 2022
  3. BREO ELLIPTA [Concomitant]
     Active Substance: FLUTICASONE FUROATE\VILANTEROL TRIFENATATE
     Indication: Asthma
  4. BETADERM [Concomitant]
     Active Substance: BETAMETHASONE VALERATE
  5. VENTOLIN [Concomitant]
     Active Substance: ALBUTEROL SULFATE
     Indication: Asthma
  6. Lyderm [Concomitant]
     Dates: start: 202505

REACTIONS (4)
  - Immunosuppression [Unknown]
  - Skin bacterial infection [Recovering/Resolving]
  - Skin swelling [Recovering/Resolving]
  - Off label use [Unknown]

NARRATIVE: CASE EVENT DATE: 20250801
